FAERS Safety Report 15522286 (Version 1)
Quarter: 2018Q4

REPORT INFORMATION
  Report Type: Spontaneous
  Country: US (occurrence: US)
  Receive Date: 20181018
  Receipt Date: 20181018
  Transmission Date: 20190205
  Serious: No
  Sender: FDA-Public Use
  Company Number: None

PATIENT
  Age: 47 Year
  Sex: Female
  Weight: 97.52 kg

DRUGS (4)
  1. BIOTIN [Concomitant]
     Active Substance: BIOTIN
  2. MULTI VITAMIN [Concomitant]
     Active Substance: VITAMINS
  3. ESSURE [Suspect]
     Active Substance: DEVICE
  4. VITAMIN D [Concomitant]
     Active Substance: CHOLECALCIFEROL

REACTIONS (5)
  - Gingival pain [None]
  - Joint swelling [None]
  - Pelvic pain [None]
  - Alopecia [None]
  - Inner ear disorder [None]

NARRATIVE: CASE EVENT DATE: 20170629
